FAERS Safety Report 24933532 (Version 1)
Quarter: 2025Q1

REPORT INFORMATION
  Report Type: Report from Study
  Country: US (occurrence: US)
  Receive Date: 20250206
  Receipt Date: 20250206
  Transmission Date: 20250409
  Serious: Yes (Other)
  Sender: EXELIXIS
  Company Number: US-EXELIXIS-CABO-23071147

PATIENT
  Sex: Male

DRUGS (2)
  1. CABOMETYX [Suspect]
     Active Substance: CABOZANTINIB S-MALATE
     Indication: Renal cancer
     Dosage: 40 MG, QD
     Route: 048
  2. CABOMETYX [Suspect]
     Active Substance: CABOZANTINIB S-MALATE
     Dosage: 60 MG, QD
     Route: 048

REACTIONS (18)
  - Malignant neoplasm progression [Unknown]
  - Erythema [Unknown]
  - Limb discomfort [Unknown]
  - Rash vesicular [Unknown]
  - Oral pain [Unknown]
  - Fatigue [Unknown]
  - Decreased appetite [Unknown]
  - Dry skin [Unknown]
  - Dysgeusia [Unknown]
  - Drug effect less than expected [Unknown]
  - Stomatitis [Unknown]
  - Frequent bowel movements [Unknown]
  - Musculoskeletal pain [Unknown]
  - SARS-CoV-2 test positive [Unknown]
  - Scrotal exfoliation [Unknown]
  - Skin ulcer [Unknown]
  - Skin exfoliation [Unknown]
  - Arthralgia [Unknown]
